FAERS Safety Report 10458780 (Version 1)
Quarter: 2014Q3

REPORT INFORMATION
  Report Type: Spontaneous
  Country: US (occurrence: None)
  Receive Date: 20140916
  Receipt Date: 20140916
  Transmission Date: 20150326
  Serious: Yes (Life-Threatening)
  Sender: FDA-Public Use
  Company Number: None

PATIENT
  Age: 52 Year
  Sex: Male
  Weight: 68.04 kg

DRUGS (4)
  1. VALSARTAN. [Suspect]
     Active Substance: VALSARTAN
     Indication: HYPERTENSION
     Dosage: 320MG, ONE, DAILY, BY MOUTH
     Route: 048
     Dates: start: 20140806, end: 20140829
  2. AMITRIPTYLINE [Concomitant]
     Active Substance: AMITRIPTYLINE
  3. HYDROCHLOPOTHYAZIDE [Concomitant]
  4. DIOVAN [Concomitant]
     Active Substance: VALSARTAN

REACTIONS (8)
  - Blood pressure increased [None]
  - Headache [None]
  - Impaired work ability [None]
  - Herpes zoster [None]
  - Disease recurrence [None]
  - Product substitution issue [None]
  - Tinnitus [None]
  - Blood pressure inadequately controlled [None]

NARRATIVE: CASE EVENT DATE: 20140827
